FAERS Safety Report 4515799-3 (Version None)
Quarter: 2004Q4

REPORT INFORMATION
  Report Type: 
  Country: None (occurrence: None)
  Receive Date: 20041001
  Receipt Date: 20030911
  Transmission Date: 20050328
  Serious: Yes (Hospitalization)
  Sender: FDA-Public Use
  Company Number: 03-880-873-01

PATIENT
  Age: 32 Year
  Sex: Female

DRUGS (1)
  1. MEDROXYPROGESTERONE ACETATE [Suspect]
     Indication: AMENORRHOEA
     Dosage: 1.00 TABLET, QD X 10 DAYS, ORAL
     Route: 048
     Dates: start: 20030623, end: 20030601

REACTIONS (2)
  - ANAPHYLACTIC REACTION [None]
  - RASH [None]
